FAERS Safety Report 5288660-7 (Version None)
Quarter: 2007Q2

REPORT INFORMATION
  Report Type: 
  Country: None (occurrence: None)
  Receive Date: 20070405
  Receipt Date: 20070329
  Transmission Date: 20071010
  Serious: Yes (Hospitalization, Other)
  Sender: FDA-Public Use
  Company Number: IT-SHR-IT-2006-005707

PATIENT
  Age: 58 Year
  Sex: Female

DRUGS (1)
  1. FLUDARA [Suspect]
     Dosage: 40 MG/M2, CYCLEX5D, EVERY 4 WEEK
     Route: 048

REACTIONS (3)
  - CHRONIC LYMPHOCYTIC LEUKAEMIA TRANSFORMATION [None]
  - EOSINOPHILIA [None]
  - LYMPHOPLASMACYTOID LYMPHOMA/IMMUNOCYTOMA [None]
